FAERS Safety Report 6248068-4 (Version None)
Quarter: 2009Q2

REPORT INFORMATION
  Report Type: 
  Country: None (occurrence: None)
  Receive Date: 20090628
  Receipt Date: 20090624
  Transmission Date: 20091009
  Serious: Yes (Other)
  Sender: FDA-Public Use
  Company Number: NL-ALLERGAN-0908968US

PATIENT
  Age: 72 Year
  Sex: Female

DRUGS (3)
  1. LUMIGAN [Suspect]
     Indication: GLAUCOMA
     Dosage: UNK, UNK
  2. GANFORT [Suspect]
     Indication: DRUG USE FOR UNKNOWN INDICATION
  3. COSOPT [Suspect]
     Indication: GLAUCOMA

REACTIONS (2)
  - HALLUCINATION, AUDITORY [None]
  - TINNITUS [None]
